FAERS Safety Report 8848206 (Version 2)
Quarter: 2012Q4

REPORT INFORMATION
  Report Type: 
  Country: US (occurrence: US)
  Receive Date: 20121018
  Receipt Date: 20121130
  Transmission Date: 20130627
  Serious: Yes (Life-Threatening, Hospitalization)
  Sender: FDA-Public Use
  Company Number: US-009507513-1210USA001740

PATIENT
  Age: 10 Year
  Sex: Male
  Weight: 40.2 kg

DRUGS (8)
  1. VORINOSTAT [Suspect]
     Indication: GLIOBLASTOMA MULTIFORME
     Dosage: 300 mg, qd
     Route: 048
     Dates: start: 20120919, end: 20120921
  2. VORINOSTAT [Suspect]
     Dosage: 300 mg, qd
     Route: 048
     Dates: start: 20120924, end: 20120926
  3. VORINOSTAT [Suspect]
     Dosage: 300 mg, qd
     Route: 048
     Dates: start: 20121001, end: 20121002
  4. VORINOSTAT [Suspect]
     Dosage: 300 mg, qd
     Route: 048
     Dates: start: 20121005, end: 20121011
  5. RADIOTHERAPY [Suspect]
     Indication: GLIOBLASTOMA MULTIFORME
     Dosage: UNK
     Dates: start: 20120919, end: 20120921
  6. RADIOTHERAPY [Suspect]
     Dosage: UNK
     Dates: start: 20120924, end: 20120926
  7. RADIOTHERAPY [Suspect]
     Dosage: UNK
     Dates: start: 20121001, end: 20121002
  8. RADIOTHERAPY [Suspect]
     Dosage: UNK
     Dates: start: 20121005, end: 20121011

REACTIONS (2)
  - Embolism [Recovering/Resolving]
  - Hydrocephalus [Recovering/Resolving]
